FAERS Safety Report 6027929-5 (Version None)
Quarter: 2009Q1

REPORT INFORMATION
  Report Type: 
  Country: None (occurrence: None)
  Receive Date: 20090105
  Receipt Date: 20081230
  Transmission Date: 20090719
  Serious: Yes (Death)
  Sender: FDA-Public Use
  Company Number: PHHY2008MX33465

PATIENT
  Sex: Female

DRUGS (1)
  1. DIOVAN HCT [Suspect]
     Indication: HYPERTENSION
     Dosage: 1 TABLET (160 MG VALSARTAN/12.5 MG HYDROCHLOROTHIAZIDE) PER DAY
     Dates: end: 20081001

REACTIONS (3)
  - DIABETES MELLITUS [None]
  - HYPERTENSION [None]
  - NEOPLASM PROGRESSION [None]
